FAERS Safety Report 21419224 (Version 1)
Quarter: 2022Q4

REPORT INFORMATION
  Report Type: Spontaneous
  Country: DE (occurrence: DE)
  Receive Date: 20221006
  Receipt Date: 20221006
  Transmission Date: 20230113
  Serious: Yes (Hospitalization, Other)
  Sender: FDA-Public Use
  Company Number: DE-ADRED-08089-01

PATIENT
  Age: 82 Year
  Sex: Male
  Weight: 70 kg

DRUGS (7)
  1. APIXABAN [Suspect]
     Active Substance: APIXABAN
     Indication: Product used for unknown indication
     Route: 048
  2. METFORMIN [Concomitant]
     Active Substance: METFORMIN HYDROCHLORIDE
     Indication: Product used for unknown indication
     Route: 048
  3. FUROSEMIDE [Concomitant]
     Active Substance: FUROSEMIDE
     Indication: Product used for unknown indication
     Dosage: FREQUENCY: 0.5-0.5-0-0
     Route: 048
  4. DIGITOXIN [Concomitant]
     Active Substance: DIGITOXIN
     Indication: Product used for unknown indication
     Route: 048
  5. SACUBITRIL\VALSARTAN [Concomitant]
     Active Substance: SACUBITRIL\VALSARTAN
     Indication: Product used for unknown indication
     Dosage: DOSE: 24|26 MG
     Route: 048
  6. SPIRONOLACTONE [Concomitant]
     Active Substance: SPIRONOLACTONE
     Indication: Product used for unknown indication
     Route: 048
  7. AMLODIPINE BESYLATE [Concomitant]
     Active Substance: AMLODIPINE BESYLATE
     Indication: Product used for unknown indication
     Route: 048

REACTIONS (5)
  - Haematochezia [Unknown]
  - Oedema peripheral [Unknown]
  - Gastrointestinal haemorrhage [Unknown]
  - Dyspnoea [Unknown]
  - Condition aggravated [Unknown]
